FAERS Safety Report 6016508-1 (Version None)
Quarter: 2008Q4

REPORT INFORMATION
  Report Type: 
  Country: None (occurrence: None)
  Receive Date: 20081222
  Receipt Date: 20081211
  Transmission Date: 20090506
  Serious: Yes (Death)
  Sender: FDA-Public Use
  Company Number: CH-AVENTIS-200821662GDDC

PATIENT
  Age: 85 Year
  Sex: Female

DRUGS (3)
  1. FLAGYL [Suspect]
     Dosage: DOSE: UNK
     Route: 048
     Dates: start: 20080401, end: 20080401
  2. ROCEPHIN [Suspect]
     Dosage: DOSE: UNK
     Route: 042
     Dates: start: 20080401, end: 20080401
  3. CIPROXIN                           /00697201/ [Suspect]
     Dosage: DOSE: UNK
     Route: 048
     Dates: start: 20080401, end: 20080401

REACTIONS (5)
  - CLOSTRIDIUM DIFFICILE COLITIS [None]
  - HYPOALBUMINAEMIA [None]
  - HYPOVOLAEMIA [None]
  - PSEUDOMEMBRANOUS COLITIS [None]
  - RENAL FAILURE [None]
